FAERS Safety Report 14918936 (Version 1)
Quarter: 2018Q2

REPORT INFORMATION
  Report Type: Report from Study
  Country: None (occurrence: US)
  Receive Date: 20180521
  Receipt Date: 20180521
  Transmission Date: 20180711
  Serious: Yes (Other)
  Sender: FDA-Public Use
  Company Number: US-ABBVIE-18K-163-2361117-00

PATIENT
  Sex: Female

DRUGS (2)
  1. HUMIRA [Suspect]
     Active Substance: ADALIMUMAB
     Indication: COLITIS ULCERATIVE
     Route: 058
     Dates: start: 201802
  2. DILAUDID [Suspect]
     Active Substance: HYDROMORPHONE HYDROCHLORIDE
     Indication: PAIN
     Route: 042

REACTIONS (7)
  - Gastroenteritis viral [Unknown]
  - Vomiting [Unknown]
  - Urticaria [Unknown]
  - Sick relative [Unknown]
  - Pain [Unknown]
  - Drug hypersensitivity [Unknown]
  - Allergic oedema [Unknown]

NARRATIVE: CASE EVENT DATE: 2018
